FAERS Safety Report 8232641-8 (Version None)
Quarter: 2012Q1

REPORT INFORMATION
  Report Type: 
  Country: None (occurrence: None)
  Receive Date: 20120323
  Receipt Date: 20120314
  Transmission Date: 20120608
  Serious: Yes (Hospitalization)
  Sender: FDA-Public Use
  Company Number: BE-ABBOTT-08P-013-0479441-00

PATIENT
  Sex: Female
  Weight: 42 kg

DRUGS (12)
  1. OMEPRAZOLE [Concomitant]
     Indication: GASTRITIS
     Dates: start: 20080401
  2. HUMIRA [Suspect]
     Route: 058
     Dates: start: 20081008
  3. HUMIRA [Suspect]
     Route: 058
     Dates: start: 20081201, end: 20101208
  4. COMMERCIAL HUMIRA [Concomitant]
     Indication: CROHN'S DISEASE
     Route: 058
     Dates: start: 20060201, end: 20060201
  5. LORAZEPAM [Concomitant]
     Indication: INSOMNIA
  6. LEVOFLOXACIN [Concomitant]
     Indication: GASTROENTERITIS
     Dates: start: 20080710, end: 20080720
  7. HUMIRA [Suspect]
     Indication: CROHN'S DISEASE
     Route: 058
     Dates: start: 20080516
  8. COMMERCIAL HUMIRA [Concomitant]
     Route: 058
  9. HUMIRA [Suspect]
     Route: 058
     Dates: start: 20080812, end: 20080930
  10. ENTOCORT EC [Concomitant]
     Indication: CROHN'S DISEASE
     Dates: start: 20050601
  11. COMMERCIAL HUMIRA [Concomitant]
     Route: 058
  12. ACETAMINOPHEN [Concomitant]
     Indication: ARTHRALGIA
     Dates: start: 20080701

REACTIONS (1)
  - GASTRITIS [None]
